FAERS Safety Report 20167991 (Version 1)
Quarter: 2021Q4

REPORT INFORMATION
  Report Type: Spontaneous
  Country: US (occurrence: US)
  Receive Date: 20211210
  Receipt Date: 20211210
  Transmission Date: 20220303
  Serious: No
  Sender: FDA-Public Use
  Company Number: US-SANOFI-00882603

PATIENT
  Age: 14 Year
  Sex: Female
  Weight: 60 kg

DRUGS (1)
  1. DUPIXENT [Suspect]
     Active Substance: DUPILUMAB
     Dosage: 200 MG, QOW

REACTIONS (2)
  - Ocular hyperaemia [Unknown]
  - Product use issue [Unknown]
